FAERS Safety Report 6250081-8 (Version None)
Quarter: 2009Q2

REPORT INFORMATION
  Report Type: 
  Country: None (occurrence: None)
  Receive Date: 20090629
  Receipt Date: 20090615
  Transmission Date: 20091009
  Serious: Yes (Other)
  Sender: FDA-Public Use
  Company Number: CZ-AMGEN-US350348

PATIENT
  Age: 29 Year
  Sex: Male

DRUGS (1)
  1. ENBREL [Suspect]
     Indication: ANKYLOSING SPONDYLITIS
     Dosage: UNSPECIFIED FROM UNKNOWN DATE, TEMPORARILY DISCONTINUED AND RESTARTED 31-JUL-2008 AT 50 MG 1X/WEEK
     Route: 058

REACTIONS (1)
  - LATENT TUBERCULOSIS [None]
